FAERS Safety Report 13824979 (Version 2)
Quarter: 2019Q3

REPORT INFORMATION
  Report Type: Spontaneous
  Country: US (occurrence: US)
  Receive Date: 20170802
  Receipt Date: 20190729
  Transmission Date: 20191004
  Serious: No
  Sender: FDA-Public Use
  Company Number: US-ABBVIE-17P-163-1989882-00

PATIENT
  Sex: Male
  Weight: 59.02 kg

DRUGS (7)
  1. ASPIRIN. [Concomitant]
     Active Substance: ASPIRIN
     Indication: CARDIOVASCULAR EVENT PROPHYLAXIS
  2. ATORVASTATIN [Concomitant]
     Active Substance: ATORVASTATIN
     Indication: BLOOD CHOLESTEROL INCREASED
  3. MULTIVITAMIN [Concomitant]
     Active Substance: VITAMINS
     Indication: VITAMIN SUPPLEMENTATION
  4. FISH OIL [Concomitant]
     Active Substance: FISH OIL
     Indication: SUPPLEMENTATION THERAPY
  5. NIASPAN [Suspect]
     Active Substance: NIACIN
     Route: 048
     Dates: start: 201703, end: 201903
  6. NIASPAN [Suspect]
     Active Substance: NIACIN
     Dosage: 1000MG TABLET AND 250MG TABLET
     Route: 048
     Dates: start: 201903
  7. NIASPAN [Suspect]
     Active Substance: NIACIN
     Indication: HYPERLIPIDAEMIA
     Route: 048
     Dates: start: 2002, end: 201703

REACTIONS (6)
  - Therapeutic product effect delayed [Not Recovered/Not Resolved]
  - Flushing [Recovered/Resolved]
  - Alanine aminotransferase increased [Not Recovered/Not Resolved]
  - Aspartate aminotransferase increased [Not Recovered/Not Resolved]
  - Low density lipoprotein increased [Recovered/Resolved]
  - Product quality issue [Not Recovered/Not Resolved]

NARRATIVE: CASE EVENT DATE: 2002
